FAERS Safety Report 22031487 (Version 1)
Quarter: 2023Q1

REPORT INFORMATION
  Report Type: Spontaneous
  Country: PT (occurrence: PT)
  Receive Date: 20230224
  Receipt Date: 20230224
  Transmission Date: 20230418
  Serious: Yes (Other)
  Sender: FDA-Public Use
  Company Number: PT-002147023-NVSC2023PT022982

PATIENT

DRUGS (12)
  1. TERBINAFINE [Suspect]
     Active Substance: TERBINAFINE
     Indication: Trichophytosis
     Dosage: 2.5 MG/KG, QD (2.5 MILLIGRAM/KILOGRAM, ONCE A DAY)
     Route: 048
  2. TERBINAFINE [Suspect]
     Active Substance: TERBINAFINE
     Indication: Evidence based treatment
  3. TERBINAFINE [Suspect]
     Active Substance: TERBINAFINE
     Indication: Dermatophytosis
  4. CICLOPIROX OLAMINE [Suspect]
     Active Substance: CICLOPIROX OLAMINE
     Indication: Trichophytosis
     Dosage: UNK
     Route: 061
  5. CICLOPIROX OLAMINE [Suspect]
     Active Substance: CICLOPIROX OLAMINE
     Indication: Evidence based treatment
  6. CICLOPIROX OLAMINE [Suspect]
     Active Substance: CICLOPIROX OLAMINE
     Indication: Dermatophytosis
  7. DIFLUCORTOLONE VALERATE [Concomitant]
     Active Substance: DIFLUCORTOLONE VALERATE
     Indication: Trichophytosis
     Dosage: UNK
     Route: 065
  8. DIFLUCORTOLONE VALERATE [Concomitant]
     Active Substance: DIFLUCORTOLONE VALERATE
     Indication: Evidence based treatment
  9. DIFLUCORTOLONE VALERATE [Concomitant]
     Active Substance: DIFLUCORTOLONE VALERATE
     Indication: Dermatophytosis
  10. ISOCONAZOL [Concomitant]
     Indication: Trichophytosis
     Dosage: UNK
     Route: 065
  11. ISOCONAZOL [Concomitant]
     Indication: Evidence based treatment
  12. ISOCONAZOL [Concomitant]
     Indication: Dermatophytosis

REACTIONS (2)
  - Abdominal pain [Recovered/Resolved]
  - Condition aggravated [Unknown]
